FAERS Safety Report 4331097-5 (Version None)
Quarter: 2004Q1

REPORT INFORMATION
  Report Type: 
  Country: None (occurrence: None)
  Receive Date: 20040331
  Receipt Date: 20040316
  Transmission Date: 20041129
  Serious: Yes (Hospitalization)
  Sender: FDA-Public Use
  Company Number: MPS1-10178

PATIENT
  Age: 11 Year
  Sex: Female
  Weight: 21 kg

DRUGS (6)
  1. ALDURAZYME [Suspect]
     Indication: MUCOPOLYSACCHARIDOSIS I
     Dosage: 14.5 MG QWK IV
     Route: 042
     Dates: start: 20040315
  2. ALDURAZYME [Suspect]
     Indication: MUCOPOLYSACCHARIDOSIS I
     Dosage: 14.5 MG QWK IV
     Route: 042
     Dates: start: 20030901, end: 20040217
  3. QVAR 40 [Concomitant]
  4. ALBUTEROL [Concomitant]
  5. ZANTAC [Concomitant]
  6. LACRI-LUBE [Concomitant]

REACTIONS (11)
  - ACUTE RESPIRATORY FAILURE [None]
  - ANAEMIA [None]
  - ANOREXIA [None]
  - ASPARTATE AMINOTRANSFERASE [None]
  - ATELECTASIS [None]
  - DECREASED ACTIVITY [None]
  - FLUID OVERLOAD [None]
  - FUNGAL INFECTION [None]
  - HERPES VIRUS INFECTION [None]
  - PNEUMONIA [None]
  - RESPIRATORY SYNCYTIAL VIRUS INFECTION [None]
